FAERS Safety Report 9606508 (Version 2)
Quarter: 2013Q4

REPORT INFORMATION
  Report Type: Spontaneous
  Country: US (occurrence: US)
  Receive Date: 20131008
  Receipt Date: 20131008
  Transmission Date: 20140711
  Serious: No
  Sender: FDA-Public Use
  Company Number: US-AMGEN-USASP2013048376

PATIENT
  Age: 84 Year
  Sex: Female

DRUGS (8)
  1. PROLIA [Suspect]
     Indication: OSTEOPOROSIS POSTMENOPAUSAL
     Dosage: UNK UNK, Q6MO
     Route: 065
     Dates: start: 20111015
  2. SYNTHROID [Concomitant]
     Dosage: 50 MUG, UNK
  3. OMEGA 3                            /01334101/ [Concomitant]
  4. CALCIUM PLUS                       /00751501/ [Concomitant]
  5. CALCIUM CITRATE [Concomitant]
  6. DIGESTIVE ENZYMES                  /02161301/ [Concomitant]
  7. COENZYME Q10 [Concomitant]
     Dosage: UNK UNK, QD
  8. VITAMIN D                          /00107901/ [Concomitant]
     Dosage: 169.9 IU, QD

REACTIONS (7)
  - Pharyngeal disorder [Unknown]
  - Gait disturbance [Unknown]
  - Hypoaesthesia [Unknown]
  - Paraesthesia [Unknown]
  - Osteoarthritis [Unknown]
  - Arthralgia [Unknown]
  - Back pain [Unknown]
